FAERS Safety Report 5643886-5 (Version None)
Quarter: 2008Q1

REPORT INFORMATION
  Report Type: 
  Country: None (occurrence: None)
  Receive Date: 20080228
  Receipt Date: 20080220
  Transmission Date: 20080703
  Serious: Yes (Hospitalization)
  Sender: FDA-Public Use
  Company Number: FR-BAXTER-2008BH001595

PATIENT
  Age: 54 Year
  Sex: Female

DRUGS (1)
  1. GAMMAGARD S/D [Suspect]
     Indication: HYPOGAMMAGLOBULINAEMIA
     Dosage: DOSE UNIT:UNKNOWN
     Route: 042
     Dates: start: 20080123, end: 20080123

REACTIONS (6)
  - BACK PAIN [None]
  - HYPOTENSION [None]
  - NAUSEA [None]
  - TACHYCARDIA [None]
  - TREMOR [None]
  - VOMITING [None]
